FAERS Safety Report 14828932 (Version 2)
Quarter: 2018Q2

REPORT INFORMATION
  Report Type: Report from Study
  Country: NL (occurrence: NL)
  Receive Date: 20180430
  Receipt Date: 20180525
  Transmission Date: 20180711
  Serious: Yes (Other)
  Sender: FDA-Public Use
  Company Number: NL-ELI_LILLY_AND_COMPANY-NL201804003626

PATIENT
  Age: 73 Year
  Sex: Female
  Weight: 54 kg

DRUGS (5)
  1. TERIPARATIDE [Suspect]
     Active Substance: TERIPARATIDE
     Indication: OSTEOPOROSIS
     Dosage: 20 UG, DAILY
     Route: 058
     Dates: start: 20161205, end: 201804
  2. TERIPARATIDE [Suspect]
     Active Substance: TERIPARATIDE
     Dosage: 20 UG, QOD
     Route: 058
     Dates: start: 20180429
  3. LATANOPROST. [Concomitant]
     Active Substance: LATANOPROST
     Indication: PRODUCT USED FOR UNKNOWN INDICATION
     Dosage: 1 DF, DAILY (50UG/ML FL 2.5ML)
  4. TERIPARATIDE [Suspect]
     Active Substance: TERIPARATIDE
     Dosage: 20 UG, DAILY
     Route: 058
     Dates: start: 20180416, end: 20180419
  5. CALCIUM CARBONATE W/COLECALCIFEROL [Concomitant]
     Active Substance: CALCIUM CARBONATE\CHOLECALCIFEROL
     Indication: PRODUCT USED FOR UNKNOWN INDICATION
     Dosage: 1 DF, DAILY (1,25G/800IE (1000MG))

REACTIONS (2)
  - Arrhythmia [Recovered/Resolved]
  - Inappropriate schedule of drug administration [Not Recovered/Not Resolved]

NARRATIVE: CASE EVENT DATE: 20180404
